FAERS Safety Report 8172632-9 (Version None)
Quarter: 2012Q1

REPORT INFORMATION
  Report Type: 
  Country: None (occurrence: None)
  Receive Date: 20120229
  Receipt Date: 20120224
  Transmission Date: 20120608
  Serious: No
  Sender: FDA-Public Use
  Company Number: US-PFIZER INC-2012049982

PATIENT
  Sex: Female
  Weight: 70 kg

DRUGS (7)
  1. ANTARA (MICRONIZED) [Concomitant]
     Dosage: 130 MG, 1X/DAY
  2. TIKOSYN [Suspect]
     Indication: ATRIAL FIBRILLATION
     Dosage: 0.125 MG, 2X/DAY
     Route: 048
     Dates: start: 20111201
  3. METOPROLOL [Concomitant]
     Dosage: 75 MG, 2X/DAY
  4. POTASSIUM [Concomitant]
     Dosage: 10 MG, 3X/DAY
  5. LISINOPRIL [Concomitant]
     Dosage: 5 MG, 1X/DAY
  6. LASIX [Concomitant]
     Dosage: 60 MG
  7. COUMADIN [Concomitant]
     Indication: ANTICOAGULANT THERAPY
     Dosage: UNKNOWN DOSE, 1X/DAY

REACTIONS (4)
  - FEELING ABNORMAL [None]
  - RHINORRHOEA [None]
  - DIARRHOEA [None]
  - HEADACHE [None]
